FAERS Safety Report 20705474 (Version 1)
Quarter: 2022Q2

REPORT INFORMATION
  Report Type: Spontaneous
  Country: US (occurrence: None)
  Receive Date: 20220412
  Receipt Date: 20220412
  Transmission Date: 20220721
  Serious: Yes (Disabling)
  Sender: FDA-Public Use
  Company Number: None

PATIENT
  Age: 77 Year
  Sex: Female
  Weight: 90 kg

DRUGS (12)
  1. NICOTINE TRANSDERMAL SYSTEM [Suspect]
     Active Substance: NICOTINE
     Indication: Nicotine dependence
     Dosage: OTHER QUANTITY : 1 PATCH(ES);?
     Route: 062
     Dates: start: 20220201, end: 20220214
  2. NICOTINE TRANSDERMAL SYSTEM [Suspect]
     Active Substance: NICOTINE
     Indication: Nicotine dependence
     Dosage: OTHER QUANTITY : 1 PATCH(ES);?FREQUENCY : EVERY DAY BEFORE NOON;?
     Route: 062
     Dates: start: 20220215, end: 20220228
  3. LISINOPRIL [Concomitant]
     Active Substance: LISINOPRIL
  4. TRIAMTERENE AND HYDROCHLOROTHIAZIDE [Concomitant]
     Active Substance: HYDROCHLOROTHIAZIDE\TRIAMTERENE
  5. METFORMIN [Concomitant]
     Active Substance: METFORMIN HYDROCHLORIDE
  6. SIMVASTATIN [Concomitant]
     Active Substance: SIMVASTATIN
  7. VITAMIN D [Concomitant]
     Active Substance: VITAMIN D NOS
  8. GABAPENTIN [Concomitant]
     Active Substance: GABAPENTIN
  9. blood pressure cuff/monitor [Concomitant]
  10. COLACE [Concomitant]
     Active Substance: DOCUSATE SODIUM
  11. SENOKOT [Concomitant]
     Active Substance: SENNOSIDES
  12. Centrum Adult [Concomitant]

REACTIONS (8)
  - Drug ineffective [None]
  - Affect lability [None]
  - Product adhesion issue [None]
  - Withdrawal syndrome [None]
  - Pain [None]
  - Affective disorder [None]
  - Application site pain [None]
  - Application site pruritus [None]

NARRATIVE: CASE EVENT DATE: 20220228
